FAERS Safety Report 8480837-2 (Version None)
Quarter: 2012Q3

REPORT INFORMATION
  Report Type: 
  Country: None (occurrence: None)
  Receive Date: 20120702
  Receipt Date: 20120620
  Transmission Date: 20120928
  Serious: Yes (Hospitalization)
  Sender: FDA-Public Use
  Company Number: US-BAYER-2012-062514

PATIENT
  Age: 44 Year
  Sex: Female
  Weight: 112.47 kg

DRUGS (14)
  1. PREDNISONE TAB [Concomitant]
     Dosage: 20 MG, 1 TABLET BID
     Route: 048
  2. SIMVASTATIN [Concomitant]
     Indication: HYPERLIPIDAEMIA
     Dosage: 20 MG, ONCE
  3. DICLOFENAC SODIUM [Concomitant]
  4. DROSPIRENONE AND ETHINYL ESTRADIOL [Suspect]
  5. CITALOPRAM HYDROBROMIDE [Concomitant]
     Indication: SLEEP DISORDER
     Dosage: 20 MG, DAILY
     Route: 048
  6. ASPIRIN [Concomitant]
     Dosage: UNK, PRN
     Route: 048
  7. SYNTHROID [Concomitant]
     Dosage: 200 ?G, DAILY
     Route: 048
  8. YAZ [Suspect]
  9. VITAMIN D [Concomitant]
     Dosage: 2000 IU, DAILY
     Route: 048
  10. YASMIN [Suspect]
  11. CIMETIDINE [Concomitant]
     Dosage: 1 TABLET 1 HOUR PRIOR TO CT SCAN
     Route: 048
  12. BENADRYL [Concomitant]
     Dosage: 50 MG 1 HOUR PRIOR TO CT SCAN
     Route: 048
  13. PREDNISONE TAB [Concomitant]
     Dosage: 50 MG, UNK
     Route: 048
  14. OXYCODONE AND ACETAMINOPHEN [Concomitant]
     Dosage: 5MG - 325 MG 1 TABLET EVERY 4 TO 6 HOURS AS NEEDED
     Route: 048

REACTIONS (1)
  - ARTERIAL THROMBOSIS LIMB [None]
